FAERS Safety Report 15010264 (Version 1)
Quarter: 2018Q2

REPORT INFORMATION
  Report Type: Spontaneous
  Country: US (occurrence: US)
  Receive Date: 20180528
  Receipt Date: 20180528
  Transmission Date: 20180711
  Serious: Yes (Other)
  Sender: FDA-Public Use
  Company Number: None

PATIENT
  Age: 74 Year
  Sex: Female
  Weight: 58.5 kg

DRUGS (18)
  1. FUROSEMIDE. [Concomitant]
     Active Substance: FUROSEMIDE
  2. MAGNESIUM [Concomitant]
     Active Substance: MAGNESIUM
  3. VIT. D [Concomitant]
  4. NASCENT IODINE [Concomitant]
  5. KLOR-CON [Concomitant]
     Active Substance: POTASSIUM CHLORIDE
  6. DEFIBRILLATOR [Concomitant]
  7. NUTRITIONAL YEAST IN JUICE [Concomitant]
  8. VITAMIN C [Concomitant]
     Active Substance: ASCORBIC ACID
  9. L-CARNITINE [Concomitant]
     Active Substance: LEVOCARNITINE
  10. COQ10 [Concomitant]
     Active Substance: UBIDECARENONE
  11. METOPROLOL SUCC ER 50 MG TAB, 50 MG PAR PHARM [Suspect]
     Active Substance: METOPROLOL SUCCINATE
     Indication: CARDIAC FAILURE
     Dosage: ?          QUANTITY:2 DF DOSAGE FORM;?
     Route: 048
     Dates: start: 20180330
  12. DIGOXEN [Concomitant]
     Active Substance: DIGOXIN
  13. WARFARIN [Concomitant]
     Active Substance: WARFARIN
  14. D-RIBOSE [Concomitant]
     Active Substance: DIETARY SUPPLEMENT
  15. OSTEO BI-FLEX EASE [Concomitant]
  16. SPIRONOLACTONE. [Concomitant]
     Active Substance: SPIRONOLACTONE
  17. MONOPRIL [Concomitant]
     Active Substance: FOSINOPRIL SODIUM
  18. VITAMIN E [Concomitant]
     Active Substance: .ALPHA.-TOCOPHEROL

REACTIONS (6)
  - Malaise [None]
  - Irritability [None]
  - Insomnia [None]
  - Suicidal ideation [None]
  - Off label use [None]
  - Toxicity to various agents [None]

NARRATIVE: CASE EVENT DATE: 20180525
